FAERS Safety Report 9813927 (Version 2)
Quarter: 2014Q1

REPORT INFORMATION
  Report Type: Report from Study
  Country: FR (occurrence: FR)
  Receive Date: 20140113
  Receipt Date: 20140113
  Transmission Date: 20141002
  Serious: Yes (Hospitalization)
  Sender: FDA-Public Use
  Company Number: FR-GLAXOSMITHKLINE-B0706812A

PATIENT
  Age: 83 Year
  Sex: Female
  Weight: 89 kg

DRUGS (2)
  1. OFATUMUMAB [Suspect]
     Indication: DIFFUSE LARGE B-CELL LYMPHOMA
     Dates: start: 20110111
  2. CHOP [Suspect]
     Indication: DIFFUSE LARGE B-CELL LYMPHOMA
     Dates: start: 20110111

REACTIONS (1)
  - Infusion related reaction [Recovered/Resolved with Sequelae]
